FAERS Safety Report 10279068 (Version 2)
Quarter: 2014Q3

REPORT INFORMATION
  Report Type: Report from Study
  Country: CA (occurrence: CA)
  Receive Date: 20140707
  Receipt Date: 20140707
  Transmission Date: 20150326
  Serious: Yes (Death, Hospitalization, Other)
  Sender: FDA-Public Use
  Company Number: CA-ROCHE-1109647

PATIENT
  Age: 67 Year
  Sex: Male
  Weight: 93.4 kg

DRUGS (28)
  1. BISOPROLOL [Concomitant]
     Active Substance: BISOPROLOL
  2. LORAZEPAM. [Concomitant]
     Active Substance: LORAZEPAM
  3. ACETAMINOPHEN. [Concomitant]
     Active Substance: ACETAMINOPHEN
     Route: 048
     Dates: start: 20121214, end: 20121214
  4. ACETAMINOPHEN. [Concomitant]
     Active Substance: ACETAMINOPHEN
     Route: 048
     Dates: start: 20130114, end: 20130114
  5. RITUXAN [Suspect]
     Active Substance: RITUXIMAB
     Indication: RHEUMATOID ARTHRITIS
     Dosage: DAY 1, 15
     Route: 042
     Dates: start: 20121214, end: 20130114
  6. AMITRIPTYLINE [Concomitant]
     Active Substance: AMITRIPTYLINE
     Route: 065
  7. ACTEMRA [Suspect]
     Active Substance: TOCILIZUMAB
     Indication: RHEUMATOID ARTHRITIS
     Route: 042
     Dates: start: 20120227, end: 20120824
  8. NITRO-DUR [Concomitant]
     Active Substance: NITROGLYCERIN
  9. SPIRIVA [Concomitant]
     Active Substance: TIOTROPIUM BROMIDE MONOHYDRATE
  10. PREDNISONE. [Concomitant]
     Active Substance: PREDNISONE
  11. ACETYLSALICYLIC ACID [Concomitant]
     Active Substance: ASPIRIN
  12. SENNA [Concomitant]
     Active Substance: SENNA LEAF\SENNOSIDES\SENNOSIDES A AND B
  13. ATORVASTATIN [Concomitant]
     Active Substance: ATORVASTATIN
  14. TAMSULOSIN [Concomitant]
     Active Substance: TAMSULOSIN
  15. COUMADIN [Concomitant]
     Active Substance: WARFARIN SODIUM
  16. MS IR [Concomitant]
     Active Substance: MORPHINE SULFATE
  17. SYNTHROID [Concomitant]
     Active Substance: LEVOTHYROXINE SODIUM
  18. HEPTOVIR [Concomitant]
     Active Substance: LAMIVUDINE
  19. DIPHENHYDRAMINE HCL [Concomitant]
     Active Substance: DIPHENHYDRAMINE HYDROCHLORIDE
     Indication: PREMEDICATION
     Route: 048
     Dates: start: 20121214, end: 20130114
  20. PANTOPRAZOLE [Concomitant]
     Active Substance: PANTOPRAZOLE SODIUM
  21. HUMULIN NOS [Concomitant]
     Active Substance: INSULIN HUMAN
  22. VENTOLIN [Concomitant]
     Active Substance: ALBUTEROL SULFATE
  23. AZATHIOPRINE. [Concomitant]
     Active Substance: AZATHIOPRINE
  24. METHOTREXATE [Concomitant]
     Active Substance: METHOTREXATE
  25. CALCITONIN [Concomitant]
     Active Substance: CALCITONIN
  26. FUROSEMIDE. [Concomitant]
     Active Substance: FUROSEMIDE
  27. DOCUSATE SODIUM. [Concomitant]
     Active Substance: DOCUSATE SODIUM
  28. METHYLPREDNISOLONE [Concomitant]
     Active Substance: METHYLPREDNISOLONE
     Route: 042
     Dates: start: 20121214, end: 20130114

REACTIONS (5)
  - Renal failure [Fatal]
  - Cardiac failure [Fatal]
  - Drug ineffective [Unknown]
  - Epistaxis [Recovered/Resolved]
  - Pneumonia [Recovered/Resolved]

NARRATIVE: CASE EVENT DATE: 201212
